FAERS Safety Report 24541068 (Version 2)
Quarter: 2024Q4

REPORT INFORMATION
  Report Type: Spontaneous
  Country: US (occurrence: US)
  Receive Date: 20241023
  Receipt Date: 20241115
  Transmission Date: 20250115
  Serious: Yes (Other)
  Sender: PFIZER
  Company Number: US-PFIZER INC-202400282236

PATIENT
  Age: 56 Year
  Sex: Female

DRUGS (1)
  1. VELSIPITY [Suspect]
     Active Substance: ETRASIMOD ARGININE
     Dosage: 2 MG

REACTIONS (9)
  - Near death experience [Unknown]
  - Escherichia infection [Unknown]
  - Gastrointestinal disorder [Unknown]
  - Inflammation [Unknown]
  - Flatulence [Unknown]
  - Weight increased [Unknown]
  - Feeling abnormal [Unknown]
  - Illness [Unknown]
  - Constipation [Unknown]
